FAERS Safety Report 16452415 (Version 2)
Quarter: 2019Q3

REPORT INFORMATION
  Report Type: Spontaneous
  Country: US (occurrence: US)
  Receive Date: 20190619
  Receipt Date: 20190917
  Transmission Date: 20191004
  Serious: Yes (Hospitalization)
  Sender: FDA-Public Use
  Company Number: US-BIOCODEX SA-201900502

PATIENT
  Age: 5 Year
  Sex: Female

DRUGS (1)
  1. DIACOMIT [Suspect]
     Active Substance: STIRIPENTOL
     Indication: PRODUCT USED FOR UNKNOWN INDICATION
     Dosage: 500 MG, QD
     Route: 048
     Dates: start: 20190522

REACTIONS (4)
  - Seizure [Unknown]
  - Seizure cluster [Unknown]
  - Pneumonia [Unknown]
  - Decreased appetite [Unknown]

NARRATIVE: CASE EVENT DATE: 20190701
